FAERS Safety Report 15029818 (Version 1)
Quarter: 2018Q2

REPORT INFORMATION
  Report Type: Spontaneous
  Country: US (occurrence: US)
  Receive Date: 20180619
  Receipt Date: 20180619
  Transmission Date: 20180711
  Serious: Yes (Death)
  Sender: FDA-Public Use
  Company Number: US-JNJFOC-20180622963

PATIENT
  Age: 70 Year

DRUGS (1)
  1. XARELTO [Suspect]
     Active Substance: RIVAROXABAN
     Indication: PRODUCT USED FOR UNKNOWN INDICATION
     Route: 048
     Dates: start: 20170906, end: 20171112

REACTIONS (3)
  - Haemorrhage [Fatal]
  - Brain midline shift [Fatal]
  - Intracranial mass [Fatal]

NARRATIVE: CASE EVENT DATE: 20171112
